FAERS Safety Report 24682538 (Version 2)
Quarter: 2024Q4

REPORT INFORMATION
  Report Type: Spontaneous
  Country: US (occurrence: US)
  Receive Date: 20241130
  Receipt Date: 20241130
  Transmission Date: 20250115
  Serious: Yes (Other)
  Sender: AMGEN
  Company Number: US-AMGEN-USASP2024232437

PATIENT
  Age: 24 Year
  Sex: Female

DRUGS (3)
  1. BEVACIZUMAB [Suspect]
     Active Substance: BEVACIZUMAB
     Indication: Cerebellar syndrome
     Dosage: UNK
  2. BEVACIZUMAB [Suspect]
     Active Substance: BEVACIZUMAB
     Dosage: UNK (EVERY 4 TO 6 WEEKS)
  3. TRIAMCINOLONE [Concomitant]
     Active Substance: TRIAMCINOLONE
     Indication: Cerebellar syndrome
     Route: 065

REACTIONS (6)
  - Retinal exudates [Unknown]
  - Cataract [Unknown]
  - Retinal fibrosis [Unknown]
  - Serous retinal detachment [Unknown]
  - Drug ineffective for unapproved indication [Unknown]
  - Off label use [Unknown]
